FAERS Safety Report 4977518-6 (Version None)
Quarter: 2006Q2

REPORT INFORMATION
  Report Type: 
  Country: None (occurrence: None)
  Receive Date: 20060413
  Receipt Date: 20060331
  Transmission Date: 20061013
  Serious: Yes (Hospitalization)
  Sender: FDA-Public Use
  Company Number: 2006-DE-01684GD

PATIENT
  Age: 31 Year
  Sex: Female

DRUGS (1)
  1. NAPROXEN [Suspect]

REACTIONS (4)
  - COLONOSCOPY ABNORMAL [None]
  - HAEMATOCHEZIA [None]
  - LARGE INTESTINAL ULCER [None]
  - NORMOCHROMIC NORMOCYTIC ANAEMIA [None]
